FAERS Safety Report 9555091 (Version 1)
Quarter: 2013Q3

REPORT INFORMATION
  Report Type: Spontaneous
  Country: US (occurrence: None)
  Receive Date: 20130906
  Receipt Date: 20130906
  Transmission Date: 20140515
  Serious: Yes (Hospitalization)
  Sender: FDA-Public Use
  Company Number: FK201300761

PATIENT
  Age: 21 Year
  Sex: Female
  Weight: 95.9 kg

DRUGS (4)
  1. OXYTOCIN [Suspect]
     Indication: CAESAREAN SECTION
     Dosage: 30 USP UNITS, ONCE, UNKNOWN
     Dates: start: 20130110, end: 20130110
  2. LACTATED RINGERS (FLEBOBAG RING LACT) [Concomitant]
  3. PRENATAL VITAMINS [Concomitant]
  4. ALBUTEROL [Concomitant]

REACTIONS (1)
  - Drug ineffective [None]
